FAERS Safety Report 4391918-7 (Version None)
Quarter: 2004Q3

REPORT INFORMATION
  Report Type: 
  Country: None (occurrence: None)
  Receive Date: 20040701
  Receipt Date: 20040611
  Transmission Date: 20050211
  Serious: Yes (Hospitalization, Other)
  Sender: FDA-Public Use
  Company Number: USA040361074

PATIENT
  Age: 43 Year
  Sex: Male
  Weight: 110 kg

DRUGS (9)
  1. GEMZAR [Suspect]
     Indication: COLORECTAL CANCER METASTATIC
     Dosage: 1800 MG/1 OTHER
     Route: 050
     Dates: start: 20031201, end: 20040213
  2. VANCOMYCIN [Concomitant]
  3. NORVASC [Concomitant]
  4. MS CONTIN [Concomitant]
  5. ROXANOL (MORPHINE SULFATE) [Concomitant]
  6. CIPRO [Concomitant]
  7. FLAGYL [Concomitant]
  8. LEVAQUIN [Concomitant]
  9. ZITHROMAX [Concomitant]

REACTIONS (25)
  - ABASIA [None]
  - ABDOMINAL PAIN LOWER [None]
  - ALANINE AMINOTRANSFERASE INCREASED [None]
  - ANAL FISTULA [None]
  - ASPARTATE AMINOTRANSFERASE INCREASED [None]
  - CELLULITIS [None]
  - ERYTHEMA [None]
  - FLUID RETENTION [None]
  - FOLLICULITIS [None]
  - HAEMOGLOBIN DECREASED [None]
  - HAEMORRHAGE [None]
  - HYDRONEPHROSIS [None]
  - MYOSITIS [None]
  - NAUSEA [None]
  - OEDEMA PERIPHERAL [None]
  - PAIN IN EXTREMITY [None]
  - PLATELET COUNT DECREASED [None]
  - RASH [None]
  - RASH PUSTULAR [None]
  - RED BLOOD CELLS URINE [None]
  - SMALL INTESTINAL OBSTRUCTION [None]
  - STENT OCCLUSION [None]
  - URINE LEUKOCYTE ESTERASE POSITIVE [None]
  - WHITE BLOOD CELL COUNT INCREASED [None]
  - WHITE BLOOD CELLS URINE [None]
